FAERS Safety Report 5033113-4 (Version None)
Quarter: 2006Q2

REPORT INFORMATION
  Report Type: 
  Country: None (occurrence: None)
  Receive Date: 20060505
  Receipt Date: 20050815
  Transmission Date: 20061013
  Serious: Yes (Other)
  Sender: FDA-Public Use
  Company Number: PHEH2005US06274

PATIENT
  Age: 67 Year
  Sex: Female
  Weight: 83.4 kg

DRUGS (4)
  1. DIOVAN HCT [Suspect]
  2. WELLBUTRIN [Concomitant]
  3. VITAMINS (NO INGREDIENTS/SUBSTANCES) [Concomitant]
  4. ASPIRIN [Concomitant]

REACTIONS (6)
  - COUGH [None]
  - DEHYDRATION [None]
  - NAUSEA [None]
  - PAIN IN EXTREMITY [None]
  - PARAESTHESIA [None]
  - UPPER RESPIRATORY TRACT INFECTION [None]
